FAERS Safety Report 4768581-6 (Version None)
Quarter: 2005Q3

REPORT INFORMATION
  Report Type: 
  Country: None (occurrence: None)
  Receive Date: 20050914
  Receipt Date: 20050907
  Transmission Date: 20060218
  Serious: Yes (Death, Hospitalization)
  Sender: FDA-Public Use
  Company Number: US-JNJFOC-20050902020

PATIENT
  Age: 39 Year
  Sex: Male

DRUGS (4)
  1. ACETAMINOPHEN [Suspect]
     Route: 048
  2. ACETAMINOPHEN [Suspect]
     Route: 048
  3. ISOPROPYL ALCOHOL COMPOUND LIQUID [Suspect]
     Route: 048
  4. ETHANOL-CONTAINING MOUTHWASH [Suspect]
     Route: 048

REACTIONS (10)
  - CARDIAC ARREST [None]
  - COMA [None]
  - DRUG TOXICITY [None]
  - GASTROINTESTINAL HAEMORRHAGE [None]
  - GASTROINTESTINAL ULCER [None]
  - HEPATIC FUNCTION ABNORMAL [None]
  - INTENTIONAL MISUSE [None]
  - PLATELET COUNT DECREASED [None]
  - RESPIRATORY DEPRESSION [None]
  - URINE OUTPUT DECREASED [None]
